FAERS Safety Report 8234195-9 (Version None)
Quarter: 2012Q1

REPORT INFORMATION
  Report Type: 
  Country: None (occurrence: None)
  Receive Date: 20120326
  Receipt Date: 20120315
  Transmission Date: 20120608
  Serious: Yes (Life-Threatening, Hospitalization)
  Sender: FDA-Public Use
  Company Number: US-BRISTOL-MYERS SQUIBB COMPANY-16457384

PATIENT
  Age: 53 Year
  Sex: Male

DRUGS (9)
  1. LORTAB [Concomitant]
     Indication: PAIN
     Dosage: 1DF=2.5/500MG.
  2. CALCIUM CARBONATE [Concomitant]
  3. XANAX [Concomitant]
  4. FOLIC ACID [Concomitant]
  5. RITONAVIR [Concomitant]
  6. DEXAMETHASONE [Concomitant]
  7. REYATAZ [Suspect]
     Dosage: 300 MG DAILY.
  8. FERROUS SULFATE TAB [Concomitant]
  9. TRUVADA [Concomitant]

REACTIONS (1)
  - SEPSIS [None]
